FAERS Safety Report 15322799 (Version 1)
Quarter: 2018Q3

REPORT INFORMATION
  Report Type: Report from Study
  Country: CO (occurrence: CO)
  Receive Date: 20180827
  Receipt Date: 20180827
  Transmission Date: 20181010
  Serious: Yes (Other)
  Sender: FDA-Public Use
  Company Number: CO-ELI_LILLY_AND_COMPANY-CO201808011173

PATIENT
  Age: 54 Year
  Sex: Male

DRUGS (1)
  1. CETUXIMAB. [Suspect]
     Active Substance: CETUXIMAB
     Indication: COLORECTAL CANCER
     Dosage: 400 MG, ONCE IN TWO WEEKS
     Route: 042
     Dates: start: 20180530

REACTIONS (3)
  - Infusion site cellulitis [Unknown]
  - Venous thrombosis limb [Unknown]
  - Off label use [Unknown]

NARRATIVE: CASE EVENT DATE: 20180806
